FAERS Safety Report 11717879 (Version 1)
Quarter: 2015Q4

REPORT INFORMATION
  Report Type: Spontaneous
  Country: US (occurrence: None)
  Receive Date: 20151109
  Receipt Date: 20151109
  Transmission Date: 20160304
  Serious: Yes (Life-Threatening)
  Sender: FDA-Public Use
  Company Number: None

PATIENT
  Age: 67 Year
  Sex: Male
  Weight: 92.3 kg

DRUGS (1)
  1. IODINATED I-125 SERUM ALBUMIN [Suspect]
     Active Substance: IODINATED I-125 SERUM ALBUMIN
     Indication: ANGIOGRAM
     Route: 042
     Dates: start: 20150217, end: 20150217

REACTIONS (3)
  - Angioedema [None]
  - Electrocardiogram ST segment depression [None]
  - Anaphylactic reaction [None]

NARRATIVE: CASE EVENT DATE: 20150217
